FAERS Safety Report 5985959-3 (Version None)
Quarter: 2008Q4

REPORT INFORMATION
  Report Type: 
  Country: None (occurrence: None)
  Receive Date: 20081205
  Receipt Date: 20081205
  Transmission Date: 20090506
  Serious: Yes (Hospitalization, Other)
  Sender: FDA-Public Use
  Company Number: None

PATIENT
  Age: 31 Year
  Sex: Male

DRUGS (11)
  1. FERROUS SULFATE TAB [Suspect]
     Indication: ANAEMIA
     Dosage: 200 MG, TID, ORAL
     Route: 048
     Dates: start: 20080610, end: 20080714
  2. CLOZAPINE [Suspect]
     Indication: SCHIZOPHRENIA
     Dosage: 300 MG, ORAL
     Route: 048
     Dates: start: 20040101, end: 20080723
  3. AMISULPRIDE (AMISULPRIDE) [Concomitant]
  4. ASCORBIC ACID [Concomitant]
  5. BECLOMETHASONE DIPROPIONATE [Concomitant]
  6. FYBOGEL (ISPAGHULA, PLANTAGO OVATA) [Concomitant]
  7. IPRATROPIUM BROMIDE [Concomitant]
  8. LACTULOSE [Concomitant]
  9. LANSOPRAZOLE [Concomitant]
  10. SALBUTAMOL (SALBUTAMOL) [Concomitant]
  11. VALPROIC ACID (VALPROIC ACID) [Concomitant]

REACTIONS (5)
  - FAECALOMA [None]
  - GASTROINTESTINAL NECROSIS [None]
  - GENERAL PHYSICAL HEALTH DETERIORATION [None]
  - ORCHITIS [None]
  - PNEUMONIA [None]
